FAERS Safety Report 9978854 (Version 1)
Quarter: 2014Q1

REPORT INFORMATION
  Report Type: Report from Study
  Country: US (occurrence: US)
  Receive Date: 20140306
  Receipt Date: 20140306
  Transmission Date: 20141002
  Serious: No
  Sender: FDA-Public Use
  Company Number: US-ABBVIE-13P-163-1173613-00

PATIENT
  Age: 54 Year
  Sex: Female
  Weight: 111.23 kg

DRUGS (1)
  1. HUMIRA [Suspect]
     Indication: RHEUMATOID ARTHRITIS
     Route: 058
     Dates: start: 201310

REACTIONS (5)
  - Sinus disorder [Recovering/Resolving]
  - Aphonia [Recovering/Resolving]
  - Injection site bruising [Recovered/Resolved]
  - Nasal congestion [Recovering/Resolving]
  - Allergic cough [Recovering/Resolving]
